FAERS Safety Report 9316362 (Version 2)
Quarter: 2013Q3

REPORT INFORMATION
  Report Type: Report from Study
  Country: TW (occurrence: TW)
  Receive Date: 20130530
  Receipt Date: 20130705
  Transmission Date: 20140515
  Serious: Yes (Other)
  Sender: FDA-Public Use
  Company Number: TW-GENZYME-CERZ-1003028

PATIENT
  Age: 54 Year
  Sex: Female
  Weight: 58 kg

DRUGS (9)
  1. CEREZYME [Suspect]
     Indication: GAUCHER^S DISEASE
     Dosage: 60 U/KG, Q2W
     Route: 042
     Dates: start: 20030528
  2. EUCLIDAN [Concomitant]
     Indication: PRODUCT USED FOR UNKNOWN INDICATION
     Dosage: 1 DF, BID
     Route: 048
     Dates: start: 20060510, end: 20110427
  3. JUVELA NICOTINATE [Concomitant]
     Indication: PRODUCT USED FOR UNKNOWN INDICATION
     Dosage: 1 DF, BID
     Route: 048
     Dates: start: 20060510, end: 20110427
  4. NEOSTIGMINE [Concomitant]
     Indication: PRODUCT USED FOR UNKNOWN INDICATION
     Dosage: 1 DF, BID
     Route: 047
     Dates: start: 20060510
  5. VOLTAN SR [Concomitant]
     Indication: PRODUCT USED FOR UNKNOWN INDICATION
     Dosage: 1 DF, BID
     Route: 048
     Dates: start: 20061020, end: 20061020
  6. VOLTAN SR [Concomitant]
     Dosage: 1 DF, QD
     Route: 048
     Dates: start: 20071003, end: 20071003
  7. VOLTAN SR [Concomitant]
     Dosage: 1 DF, BID
     Route: 048
     Dates: start: 20080116, end: 20080116
  8. VOLTAN SR [Concomitant]
     Dosage: 1 DF, QD
     Route: 048
     Dates: start: 20090923, end: 20090923
  9. VOLTAN SR [Concomitant]
     Dosage: UNK
     Route: 048

REACTIONS (2)
  - Transient ischaemic attack [Recovered/Resolved]
  - Hyperlipidaemia [Recovered/Resolved]
